FAERS Safety Report 22264163 (Version 5)
Quarter: 2024Q2

REPORT INFORMATION
  Report Type: Spontaneous
  Country: AU (occurrence: AU)
  Receive Date: 20230428
  Receipt Date: 20240403
  Transmission Date: 20240716
  Serious: No
  Sender: FDA-Public Use
  Company Number: US-VERTEX PHARMACEUTICALS-2023-006043

PATIENT

DRUGS (2)
  1. TRIKAFTA [Suspect]
     Active Substance: ELEXACAFTOR\IVACAFTOR\TEZACAFTOR
     Indication: Cystic fibrosis
     Dosage: UNK
     Route: 048
  2. TRIKAFTA [Suspect]
     Active Substance: ELEXACAFTOR\IVACAFTOR\TEZACAFTOR
     Dosage: STOP TAKING THE PINK ONES
     Route: 048

REACTIONS (9)
  - Anxiety [Recovering/Resolving]
  - Dysania [Recovering/Resolving]
  - Panic attack [Recovered/Resolved]
  - Mental disorder [Recovering/Resolving]
  - Gastrointestinal disorder [Recovered/Resolved]
  - Depressed mood [Unknown]
  - Breath sounds abnormal [Unknown]
  - Acne [Unknown]
  - Morbid thoughts [Recovered/Resolved]
